FAERS Safety Report 23167713 (Version 1)
Quarter: 2023Q4

REPORT INFORMATION
  Report Type: Spontaneous
  Country: US (occurrence: US)
  Receive Date: 20231109
  Receipt Date: 20231109
  Transmission Date: 20240110
  Serious: Yes (Hospitalization)
  Sender: FDA-Public Use
  Company Number: US-SA-SAC20231108001466

PATIENT
  Age: 71 Year
  Sex: Male

DRUGS (1)
  1. REZUROCK [Suspect]
     Active Substance: BELUMOSUDIL
     Indication: Acute graft versus host disease
     Dosage: 200 MG, BID
     Route: 048
     Dates: start: 20220518

REACTIONS (3)
  - Hospitalisation [Unknown]
  - Product use in unapproved indication [Unknown]
  - Inappropriate schedule of product administration [Unknown]

NARRATIVE: CASE EVENT DATE: 20220518
